FAERS Safety Report 5847260-8 (Version None)
Quarter: 2008Q3

REPORT INFORMATION
  Report Type: 
  Country: None (occurrence: None)
  Receive Date: 20080815
  Receipt Date: 20080801
  Transmission Date: 20090109
  Serious: No
  Sender: FDA-Public Use
  Company Number: US-BOEHRINGER INGELHEIM GMBH, GERMANY-2008-BP-11412BP

PATIENT
  Sex: Female

DRUGS (2)
  1. MICARDIS [Suspect]
     Indication: BLOOD PRESSURE
  2. DIURETIC [Concomitant]

REACTIONS (3)
  - DYSGEUSIA [None]
  - DYSPEPSIA [None]
  - FREQUENT BOWEL MOVEMENTS [None]
